FAERS Safety Report 16416797 (Version 2)
Quarter: 2019Q2

REPORT INFORMATION
  Report Type: Report from Study
  Country: US (occurrence: US)
  Receive Date: 20190611
  Receipt Date: 20190613
  Transmission Date: 20190711
  Serious: Yes (Other)
  Sender: FDA-Public Use
  Company Number: US-PFIZER INC-2019241940

PATIENT

DRUGS (1)
  1. INDOMETHACIN. [Suspect]
     Active Substance: INDOMETHACIN
     Indication: MENINGOMYELOCELE
     Dosage: UNK UNK, 2X/DAY
     Route: 064

REACTIONS (2)
  - Maternal exposure during pregnancy [Unknown]
  - Ductus arteriosus stenosis foetal [Unknown]
